FAERS Safety Report 8256243-2 (Version None)
Quarter: 2012Q2

REPORT INFORMATION
  Report Type: 
  Country: None (occurrence: None)
  Receive Date: 20120403
  Receipt Date: 20120323
  Transmission Date: 20120825
  Serious: Yes (Other)
  Sender: FDA-Public Use
  Company Number: JP-ELI_LILLY_AND_COMPANY-JP201203006788

PATIENT
  Sex: Female

DRUGS (2)
  1. DOCETAXEL [Concomitant]
     Indication: OVARIAN CANCER RECURRENT
     Route: 042
  2. GEMZAR [Suspect]
     Indication: OVARIAN CANCER RECURRENT
     Route: 042

REACTIONS (1)
  - GLAUCOMA [None]
